FAERS Safety Report 6928131-2 (Version None)
Quarter: 2010Q3

REPORT INFORMATION
  Report Type: 
  Country: None (occurrence: None)
  Receive Date: 20100812
  Receipt Date: 20100728
  Transmission Date: 20110219
  Serious: Yes (Other)
  Sender: FDA-Public Use
  Company Number: GB-DEXPHARM-20101140

PATIENT
  Age: 48 Year
  Sex: Female

DRUGS (3)
  1. CHLORHEXIDINE GLUCONATE [Suspect]
     Indication: DENTAL CLEANING
     Dosage: DOSE: 15 ML MILLILITRE(S) ORAL
     Route: 048
     Dates: start: 20100602, end: 20100602
  2. HORMONE REPLACEMENT THERAPY [Concomitant]
  3. SIMVASTATIN [Concomitant]

REACTIONS (1)
  - DRUG HYPERSENSITIVITY [None]
